FAERS Safety Report 8136265 (Version 14)
Quarter: 2019Q3

REPORT INFORMATION
  Report Type: Spontaneous
  Country: GB (occurrence: GB)
  Receive Date: 20110914
  Receipt Date: 20190830
  Transmission Date: 20191005
  Serious: Yes (Life-Threatening, Hospitalization, Disabling, Other)
  Sender: FDA-Public Use
  Company Number: GB-ASTRAZENECA-2011SE53176

PATIENT
  Age: 27 Year
  Sex: Female
  Weight: 63.5 kg

DRUGS (51)
  1. MIRTAZAPINE. [Suspect]
     Active Substance: MIRTAZAPINE
     Indication: DEPRESSION
     Route: 048
     Dates: start: 20100923, end: 20101108
  2. SEROXAT [Suspect]
     Active Substance: PAROXETINE HYDROCHLORIDE
     Indication: POST-TRAUMATIC STRESS DISORDER
     Route: 048
     Dates: start: 1997
  3. CODEINE [Suspect]
     Active Substance: CODEINE
     Indication: SEROTONIN SYNDROME
     Route: 048
     Dates: start: 20110615, end: 20110723
  4. PROCYCLIDINE [Suspect]
     Active Substance: PROCYCLIDINE
     Indication: EXTRAPYRAMIDAL DISORDER
     Route: 048
     Dates: start: 20110503, end: 20110510
  5. TRAMADOL. [Suspect]
     Active Substance: TRAMADOL
     Indication: ANALGESIC THERAPY
     Dosage: FOUR TIMES A DAY
     Route: 048
     Dates: start: 20081201, end: 20101210
  6. TRAMADOL. [Suspect]
     Active Substance: TRAMADOL
     Indication: ANALGESIC THERAPY
     Route: 048
     Dates: start: 20081201, end: 20101210
  7. SEROXAT [Suspect]
     Active Substance: PAROXETINE HYDROCHLORIDE
     Indication: DEPRESSION
     Route: 048
     Dates: start: 1997
  8. SEROXAT [Suspect]
     Active Substance: PAROXETINE HYDROCHLORIDE
     Indication: DEPRESSION
     Dosage: 60.0MG UNKNOWN
     Route: 048
     Dates: start: 19990801, end: 201105
  9. SEROXAT [Suspect]
     Active Substance: PAROXETINE HYDROCHLORIDE
     Indication: DEPRESSION
     Dosage: 20.0MG UNKNOWN
     Route: 048
     Dates: start: 201105, end: 20110706
  10. CODEINE [Suspect]
     Active Substance: CODEINE
     Indication: ANALGESIC THERAPY
     Route: 048
     Dates: start: 20110615, end: 20110723
  11. TRAMADOL. [Suspect]
     Active Substance: TRAMADOL
     Indication: BACK PAIN
     Dosage: FOUR TIMES A DAY
     Route: 048
     Dates: start: 20080722, end: 20101210
  12. TRAMADOL. [Suspect]
     Active Substance: TRAMADOL
     Indication: BACK PAIN
     Dosage: FOUR TIMES A DAY
     Route: 048
     Dates: start: 20081201, end: 20101210
  13. PAROXETINE. [Suspect]
     Active Substance: PAROXETINE
     Indication: DEPRESSION
     Dosage: 40.0MG UNKNOWN
     Route: 065
     Dates: start: 19990801, end: 20110706
  14. OMEPRAZOLE. [Suspect]
     Active Substance: OMEPRAZOLE
     Indication: GASTRIC PH DECREASED
     Route: 048
     Dates: start: 201103
  15. SEROXAT [Suspect]
     Active Substance: PAROXETINE HYDROCHLORIDE
     Indication: DEPRESSION
     Dosage: 40.0MG UNKNOWN
     Route: 048
  16. SEROXAT [Suspect]
     Active Substance: PAROXETINE HYDROCHLORIDE
     Indication: POST-TRAUMATIC STRESS DISORDER
     Dosage: 40.0MG UNKNOWN
     Route: 048
  17. SEROXAT [Suspect]
     Active Substance: PAROXETINE HYDROCHLORIDE
     Indication: DEPRESSION
     Dosage: 40.0MG UNKNOWN
     Route: 048
  18. SEROXAT [Suspect]
     Active Substance: PAROXETINE HYDROCHLORIDE
     Indication: POST-TRAUMATIC STRESS DISORDER
     Dosage: 60.0MG UNKNOWN
     Route: 048
     Dates: start: 19990801, end: 201105
  19. SEROXAT [Suspect]
     Active Substance: PAROXETINE HYDROCHLORIDE
     Indication: POST-TRAUMATIC STRESS DISORDER
     Dosage: 20.0MG UNKNOWN
     Route: 048
     Dates: end: 201105
  20. AMITRIPTYLINE [Suspect]
     Active Substance: AMITRIPTYLINE
     Indication: NEURALGIA
     Route: 065
     Dates: start: 20110810
  21. CODEINE [Suspect]
     Active Substance: CODEINE
     Indication: ANALGESIC THERAPY
     Route: 048
     Dates: start: 2002, end: 2002
  22. TRAMADOL. [Suspect]
     Active Substance: TRAMADOL
     Indication: ANALGESIC THERAPY
     Dosage: FOUR TIMES A DAY
     Route: 048
     Dates: start: 20080722, end: 20101210
  23. OMEPRAZOLE. [Suspect]
     Active Substance: OMEPRAZOLE
     Indication: GASTRIC PH DECREASED
     Route: 048
     Dates: start: 20110525
  24. DIAZEPAM. [Suspect]
     Active Substance: DIAZEPAM
     Indication: MUSCLE SPASMS
     Route: 065
     Dates: start: 20110725
  25. CODEINE [Suspect]
     Active Substance: CODEINE
     Indication: ANALGESIC THERAPY
     Route: 048
     Dates: start: 2008, end: 2008
  26. LORAZEPAM. [Suspect]
     Active Substance: LORAZEPAM
     Indication: SEDATION
     Dosage: 1.0MG UNKNOWN
     Route: 065
     Dates: start: 20110224, end: 20110410
  27. TRAMADOL. [Suspect]
     Active Substance: TRAMADOL
     Indication: NECK PAIN
     Dosage: FOUR TIMES A DAY
     Route: 048
     Dates: start: 20080722, end: 20101210
  28. SEROXAT [Suspect]
     Active Substance: PAROXETINE HYDROCHLORIDE
     Indication: DEPRESSION
     Dosage: 20.0MG UNKNOWN
     Route: 048
     Dates: end: 201105
  29. LORAZEPAM. [Suspect]
     Active Substance: LORAZEPAM
     Indication: SEDATION
     Dosage: 4.0MG UNKNOWN
     Route: 048
     Dates: start: 20110523, end: 20110627
  30. PROCYCLIDINE [Suspect]
     Active Substance: PROCYCLIDINE
     Indication: EXTRAPYRAMIDAL DISORDER
     Route: 065
     Dates: start: 1995, end: 1996
  31. PROCYCLIDINE [Suspect]
     Active Substance: PROCYCLIDINE
     Indication: OCULOGYRIC CRISIS
     Route: 048
     Dates: start: 20110503, end: 20110510
  32. TRAMADOL. [Suspect]
     Active Substance: TRAMADOL
     Indication: NECK PAIN
     Dosage: FOUR TIMES A DAY
     Route: 048
     Dates: start: 20081201, end: 20101210
  33. OMEPRAZOLE. [Suspect]
     Active Substance: OMEPRAZOLE
     Indication: DYSPEPSIA
     Route: 048
     Dates: start: 20110525
  34. CLONAZEPAM. [Suspect]
     Active Substance: CLONAZEPAM
     Indication: SEDATION
     Route: 048
     Dates: start: 20110224, end: 20110410
  35. SEROXAT [Suspect]
     Active Substance: PAROXETINE HYDROCHLORIDE
     Indication: POST-TRAUMATIC STRESS DISORDER
     Dosage: 20.0MG UNKNOWN
     Route: 048
     Dates: start: 201105, end: 20110706
  36. CODEINE [Suspect]
     Active Substance: CODEINE
     Indication: SEROTONIN SYNDROME
     Route: 048
     Dates: start: 2008, end: 2008
  37. PAROXETINE. [Suspect]
     Active Substance: PAROXETINE
     Indication: POST-TRAUMATIC STRESS DISORDER
     Dosage: 40.0MG UNKNOWN
     Route: 065
     Dates: start: 19990801, end: 20110706
  38. OMEPRAZOLE. [Suspect]
     Active Substance: OMEPRAZOLE
     Indication: DYSPEPSIA
     Route: 048
     Dates: start: 201103
  39. DIAZEPAM. [Suspect]
     Active Substance: DIAZEPAM
     Indication: MUSCLE SPASMS
     Route: 065
  40. SEROXAT [Suspect]
     Active Substance: PAROXETINE HYDROCHLORIDE
     Indication: DEPRESSION
     Dosage: 60.0MG UNKNOWN
     Route: 048
     Dates: start: 19990801, end: 201105
  41. SEROXAT [Suspect]
     Active Substance: PAROXETINE HYDROCHLORIDE
     Indication: DEPRESSION
     Dosage: 20.0MG UNKNOWN
     Route: 048
     Dates: end: 201105
  42. SEROXAT [Suspect]
     Active Substance: PAROXETINE HYDROCHLORIDE
     Indication: DEPRESSION
     Dosage: 20.0MG UNKNOWN
     Route: 048
     Dates: start: 201105, end: 20110706
  43. CODEINE [Suspect]
     Active Substance: CODEINE
     Indication: SEROTONIN SYNDROME
     Route: 048
     Dates: start: 2002, end: 2002
  44. DOMPERIDONE [Suspect]
     Active Substance: DOMPERIDONE
     Route: 065
  45. TRAMADOL. [Suspect]
     Active Substance: TRAMADOL
     Indication: NECK PAIN
     Route: 048
     Dates: start: 20081201, end: 20101210
  46. TRAMADOL. [Suspect]
     Active Substance: TRAMADOL
     Indication: BACK PAIN
     Route: 048
     Dates: start: 20081201, end: 20101210
  47. QUETIAPINE. [Suspect]
     Active Substance: QUETIAPINE
     Indication: PSYCHOTIC DISORDER
     Dosage: 300.0MG UNKNOWN
     Route: 048
     Dates: start: 20110224, end: 20110506
  48. MIRTAZAPINE. [Suspect]
     Active Substance: MIRTAZAPINE
     Indication: DEPRESSION
     Dosage: TWO TIMES A DAY
     Route: 048
  49. SEROXAT [Suspect]
     Active Substance: PAROXETINE HYDROCHLORIDE
     Indication: DEPRESSION
     Route: 048
     Dates: start: 1997
  50. AMITRIPTYLINE [Suspect]
     Active Substance: AMITRIPTYLINE
     Indication: MUSCLE SPASMS
     Route: 065
     Dates: start: 20110810
  51. PROCYCLIDINE [Suspect]
     Active Substance: PROCYCLIDINE
     Indication: OCULOGYRIC CRISIS
     Route: 065
     Dates: start: 1995, end: 1996

REACTIONS (31)
  - Exposure during pregnancy [Unknown]
  - Arthralgia [Unknown]
  - Aphasia [Not Recovered/Not Resolved]
  - Seizure [Unknown]
  - Contusion [Unknown]
  - Suicidal ideation [Not Recovered/Not Resolved]
  - Neuroleptic malignant syndrome [Unknown]
  - Paraesthesia [Unknown]
  - Feeling of body temperature change [Unknown]
  - Mydriasis [Unknown]
  - Muscle spasms [Not Recovered/Not Resolved]
  - Skin discolouration [Not Recovered/Not Resolved]
  - Premature labour [Unknown]
  - Disorientation [Not Recovered/Not Resolved]
  - Swollen tongue [Unknown]
  - Speech disorder [Unknown]
  - Drug withdrawal syndrome [Unknown]
  - Malaise [Unknown]
  - Toxicity to various agents [Unknown]
  - Musculoskeletal stiffness [Unknown]
  - Muscle disorder [Unknown]
  - Pallor [Unknown]
  - Dystonia [Unknown]
  - Drug interaction [Unknown]
  - Muscle rigidity [Unknown]
  - Paralysis [Unknown]
  - Hypoaesthesia oral [Unknown]
  - Muscle spasms [Unknown]
  - Nightmare [Unknown]
  - Serotonin syndrome [Not Recovered/Not Resolved]
  - Fatigue [Unknown]

NARRATIVE: CASE EVENT DATE: 2004
